FAERS Safety Report 8445324-6 (Version None)
Quarter: 2012Q2

REPORT INFORMATION
  Report Type: 
  Country: None (occurrence: None)
  Receive Date: 20120618
  Receipt Date: 20120612
  Transmission Date: 20120825
  Serious: Yes (Death)
  Sender: FDA-Public Use
  Company Number: US-ASTRAZENECA-2012SE17758

PATIENT
  Age: 67 Year
  Sex: Female

DRUGS (2)
  1. SEROQUEL [Suspect]
     Route: 048
  2. TOPROL-XL [Suspect]
     Route: 048

REACTIONS (4)
  - SEPTIC SHOCK [None]
  - NEUTROPENIA [None]
  - ACUTE LYMPHOCYTIC LEUKAEMIA [None]
  - DRUG DOSE OMISSION [None]
